FAERS Safety Report 20841466 (Version 1)
Quarter: 2022Q2

REPORT INFORMATION
  Report Type: Other
  Country: US (occurrence: None)
  Receive Date: 20220518
  Receipt Date: 20220518
  Transmission Date: 20220720
  Serious: No
  Sender: FDA-Public Use
  Company Number: US-ROCHE-3036791

PATIENT
  Age: 64 Year
  Sex: Female

DRUGS (4)
  1. VALGANCICLOVIR [Suspect]
     Active Substance: VALGANCICLOVIR
     Indication: Cytomegalovirus infection
     Route: 065
  2. PREDNISONE [Concomitant]
     Active Substance: PREDNISONE
  3. AMPHOTERICIN B [Concomitant]
     Active Substance: AMPHOTERICIN B
  4. ITRACONAZOLE [Concomitant]
     Active Substance: ITRACONAZOLE

REACTIONS (2)
  - Off label use [Unknown]
  - No adverse event [Unknown]
